FAERS Safety Report 4487630-6 (Version None)
Quarter: 2004Q4

REPORT INFORMATION
  Report Type: 
  Country: None (occurrence: None)
  Receive Date: 20041025
  Receipt Date: 20041018
  Transmission Date: 20050328
  Serious: No
  Sender: FDA-Public Use
  Company Number: 209758

PATIENT
  Age: 49 Year
  Sex: Male
  Weight: 113.4 kg

DRUGS (6)
  1. XOLAIR [Suspect]
     Indication: ASTHMA
     Dosage: 300 MG, Q2W, SUBCUTANEOUS
     Route: 058
     Dates: start: 20040520, end: 20040728
  2. SINGULAIR [Concomitant]
  3. PROVENTIL (ALBUTEROL SULFATE, ALBUTEROL) [Concomitant]
  4. PREDNISOE (PREDNISONE) [Concomitant]
  5. ADVAIR (SALMETEROL XINAFOATE, FLUTICASONE PROPIONATE) [Concomitant]
  6. SPIRIVA [Concomitant]

REACTIONS (1)
  - PARAESTHESIA [None]
